FAERS Safety Report 15408462 (Version 1)
Quarter: 2018Q3

REPORT INFORMATION
  Report Type: Spontaneous
  Country: US (occurrence: US)
  Receive Date: 20180920
  Receipt Date: 20180920
  Transmission Date: 20181010
  Serious: No
  Sender: FDA-Public Use
  Company Number: US-TARO-2018TAR00405

PATIENT
  Sex: Female
  Weight: 63.39 kg

DRUGS (5)
  1. ZYRTEC [Concomitant]
     Active Substance: CETIRIZINE HYDROCHLORIDE
  2. FLUCONAZOLE TABLETS 200 MG [Suspect]
     Active Substance: FLUCONAZOLE
     Indication: COCCIDIOIDOMYCOSIS
     Dosage: 1 OR 2 TABLETS, 3X/DAY
     Route: 048
     Dates: start: 2012, end: 201309
  3. LEVOTHYROXINE. [Concomitant]
     Active Substance: LEVOTHYROXINE
  4. METOPROLOL. [Concomitant]
     Active Substance: METOPROLOL
  5. BABY ASPIRIN [Concomitant]
     Active Substance: ASPIRIN
     Dosage: UNK

REACTIONS (2)
  - Headache [Recovered/Resolved]
  - Alopecia [Recovered/Resolved]

NARRATIVE: CASE EVENT DATE: 2012
